FAERS Safety Report 6105190-0 (Version None)
Quarter: 2009Q1

REPORT INFORMATION
  Report Type: 
  Country: None (occurrence: None)
  Receive Date: 20090306
  Receipt Date: 20090224
  Transmission Date: 20090719
  Serious: Yes (Hospitalization)
  Sender: FDA-Public Use
  Company Number: FR-BRISTOL-MYERS SQUIBB COMPANY-14527063

PATIENT
  Age: 29 Year
  Sex: Male

DRUGS (1)
  1. LYSODREN [Suspect]
     Indication: ADRENOCORTICAL CARCINOMA
     Dosage: ALREADY TAKEN FROM 24AUG07-07SEP + FROM 1OCT-22OCT07 RESTARTED ON 28JUL08 1 DOSAGE FORM = 6 TABS.
     Route: 048
     Dates: start: 20080728, end: 20080730

REACTIONS (4)
  - OPTIC NEURITIS [None]
  - SCOTOMA [None]
  - VISION BLURRED [None]
  - VISUAL ACUITY REDUCED [None]
